FAERS Safety Report 5836015-6 (Version None)
Quarter: 2008Q3

REPORT INFORMATION
  Report Type: 
  Country: None (occurrence: None)
  Receive Date: 20080806
  Receipt Date: 20080725
  Transmission Date: 20090109
  Serious: Yes (Hospitalization, Other)
  Sender: FDA-Public Use
  Company Number: JP-PFIZER INC-2008054641

PATIENT
  Sex: Male

DRUGS (7)
  1. GABAPEN [Suspect]
     Indication: POST HERPETIC NEURALGIA
     Route: 048
     Dates: start: 20080509, end: 20080620
  2. GABAPEN [Suspect]
     Indication: TREMOR
  3. TEGRETOL [Suspect]
     Indication: POST HERPETIC NEURALGIA
     Route: 048
     Dates: start: 20080428, end: 20080620
  4. TEGRETOL [Suspect]
     Indication: TREMOR
  5. AMITRIPTYLINE HCL [Concomitant]
     Indication: POST HERPETIC NEURALGIA
     Dosage: DAILY DOSE:10MG
     Route: 048
     Dates: start: 20080428, end: 20080620
  6. AMITRIPTYLINE HCL [Concomitant]
     Indication: TREMOR
  7. CYANOCOBALAMIN [Concomitant]
     Indication: POST HERPETIC NEURALGIA
     Dosage: DAILY DOSE:1500MCG
     Route: 048

REACTIONS (3)
  - DRUG ERUPTION [None]
  - RENAL FAILURE ACUTE [None]
  - RENAL TUBULAR NECROSIS [None]
